FAERS Safety Report 8789256 (Version 1)
Quarter: 2012Q4

REPORT INFORMATION
  Report Type: Spontaneous
  Country: US (occurrence: None)
  Receive Date: 20120904
  Receipt Date: 20120904
  Transmission Date: 20130627
  Serious: Yes (Hospitalization)
  Sender: FDA-Public Use
  Company Number: 1398764

PATIENT
  Sex: Male

DRUGS (2)
  1. HYDROMORPHONE HYDROCHLORIDE [Suspect]
     Indication: LOW BACK PAIN
  2. HYDROMORPHONE HYDROCHLORIDE [Suspect]
     Indication: CHRONIC BACK PAIN

REACTIONS (3)
  - Respiratory failure [None]
  - Lobar pneumonia [None]
  - Pneumonia aspiration [None]
